FAERS Safety Report 4863124-0 (Version None)
Quarter: 2005Q4

REPORT INFORMATION
  Report Type: 
  Country: None (occurrence: None)
  Receive Date: 20051201
  Receipt Date: 20050916
  Transmission Date: 20060501
  Serious: Yes (Other)
  Sender: FDA-Public Use
  Company Number: 143184USA

PATIENT
  Age: 73 Year
  Sex: Female

DRUGS (1)
  1. VINORELBINE TARTRATE [Suspect]
     Dosage: 40 MILLIGRAM DAILY INTRAVENOUS (NOS)
     Route: 042

REACTIONS (7)
  - BURNING SENSATION [None]
  - FATIGUE [None]
  - HYPERHIDROSIS [None]
  - HYPOTENSION [None]
  - NAUSEA [None]
  - SKIN DISCOLOURATION [None]
  - SYNCOPE [None]
